APPROVED DRUG PRODUCT: IBUPROFEN
Active Ingredient: IBUPROFEN
Strength: 200MG
Dosage Form/Route: TABLET;ORAL
Application: A074525 | Product #001
Applicant: SANDOZ INC
Approved: Dec 15, 1995 | RLD: No | RS: No | Type: DISCN